FAERS Safety Report 8353960 (Version 2)
Quarter: 2015Q1

REPORT INFORMATION
  Report Type: Report from Study
  Country: US (occurrence: US)
  Receive Date: 20120125
  Receipt Date: 20150224
  Transmission Date: 20150721
  Serious: Yes (Death)
  Sender: FDA-Public Use
  Company Number: US-ROCHE-1033188

PATIENT
  Sex: Female

DRUGS (16)
  1. ARANESP [Concomitant]
     Active Substance: DARBEPOETIN ALFA
     Route: 065
  2. DECADRON [Concomitant]
     Active Substance: DEXAMETHASONE
     Route: 042
  3. AVASTIN [Suspect]
     Active Substance: BEVACIZUMAB
     Indication: GASTRIC CANCER
     Route: 042
     Dates: start: 20080611
  4. OXALIPLATIN. [Concomitant]
     Active Substance: OXALIPLATIN
     Route: 065
  5. ELOXATIN [Concomitant]
     Active Substance: OXALIPLATIN
     Route: 065
  6. LEUCOVORIN [Concomitant]
     Active Substance: LEUCOVORIN
     Route: 065
  7. AVASTIN [Suspect]
     Active Substance: BEVACIZUMAB
     Indication: METASTASES TO LIVER
  8. DECADRON [Concomitant]
     Active Substance: DEXAMETHASONE
     Route: 065
  9. DEXAMETHASONE. [Concomitant]
     Active Substance: DEXAMETHASONE
     Route: 042
  10. DOLASETRON [Concomitant]
     Active Substance: DOLASETRON
     Indication: PREMEDICATION
  11. FLUOROURACIL. [Concomitant]
     Active Substance: FLUOROURACIL
     Route: 065
  12. PALONOSETRON HYDROCHLORIDE [Concomitant]
     Active Substance: PALONOSETRON HYDROCHLORIDE
     Route: 042
  13. VITAMIN B6 [Concomitant]
     Active Substance: PYRIDOXINE HYDROCHLORIDE
  14. NEULASTA [Concomitant]
     Active Substance: PEGFILGRASTIM
     Route: 058
  15. LORAZEPAM. [Concomitant]
     Active Substance: LORAZEPAM
  16. CALCIUM CHLORIDE. [Concomitant]
     Active Substance: CALCIUM CHLORIDE
     Route: 065

REACTIONS (9)
  - Death [Fatal]
  - Fatigue [Unknown]
  - Discomfort [Unknown]
  - Drug intolerance [Unknown]
  - Insomnia [Unknown]
  - General physical health deterioration [Unknown]
  - Deep vein thrombosis [Unknown]
  - Nausea [Unknown]
  - Hyperaesthesia [Unknown]
